FAERS Safety Report 6321690-2 (Version None)
Quarter: 2009Q3

REPORT INFORMATION
  Report Type: 
  Country: None (occurrence: None)
  Receive Date: 20090821
  Receipt Date: 20090821
  Transmission Date: 20100115
  Serious: Yes (Life-Threatening)
  Sender: FDA-Public Use
  Company Number: None

PATIENT
  Sex: Female
  Weight: 66.6788 kg

DRUGS (1)
  1. JANUVIA [Suspect]
     Indication: BLOOD GLUCOSE INCREASED
     Dosage: 1 TABLET EVERY MORNING
     Dates: start: 20090710

REACTIONS (7)
  - DIZZINESS [None]
  - DYSPNOEA [None]
  - EPISTAXIS [None]
  - NASAL CONGESTION [None]
  - PHARYNGEAL OEDEMA [None]
  - PRURITUS [None]
  - SWELLING FACE [None]
